FAERS Safety Report 15950420 (Version 1)
Quarter: 2019Q1

REPORT INFORMATION
  Report Type: Spontaneous
  Country: US (occurrence: US)
  Receive Date: 20190122
  Receipt Date: 20190122
  Transmission Date: 20190417
  Serious: Yes (Hospitalization)
  Sender: FDA-Public Use
  Company Number: None

PATIENT
  Age: 48 Year
  Sex: Male

DRUGS (2)
  1. MYCOPHENOLATE TAB 500MG TAB [Suspect]
     Active Substance: MYCOPHENOLIC ACID
     Indication: PRODUCT USED FOR UNKNOWN INDICATION
     Route: 048
     Dates: start: 20180109
  2. MYCOPHENOLATE  TAB 500MG TAB [Suspect]
     Active Substance: MYCOPHENOLIC ACID
     Dosage: ?          OTHER FREQUENCY:QPM;?
     Route: 048
     Dates: start: 20180109

REACTIONS (1)
  - Nephrolithiasis [None]
